FAERS Safety Report 5206608-8 (Version None)
Quarter: 2006Q4

REPORT INFORMATION
  Report Type: 
  Country: None (occurrence: None)
  Receive Date: 20061026
  Receipt Date: 20060718
  Transmission Date: 20070319
  Serious: No
  Sender: FDA-Public Use
  Company Number: 2006090480

PATIENT
  Age: 82 Year
  Sex: Male
  Weight: 73.4827 kg

DRUGS (5)
  1. LYRICA [Suspect]
     Indication: ARTHRITIS
     Dosage: 150 MG (50 MG, 3 IN 1 D)
     Dates: start: 20060701, end: 20060701
  2. LISINOPRIL [Concomitant]
  3. GLIPIZIDE [Concomitant]
  4. METFORMIN HCL [Concomitant]
  5. PROSCAR [Concomitant]

REACTIONS (3)
  - ARTHRITIS [None]
  - FATIGUE [None]
  - NAUSEA [None]
